FAERS Safety Report 5787618-9 (Version None)
Quarter: 2008Q2

REPORT INFORMATION
  Report Type: 
  Country: None (occurrence: None)
  Receive Date: 20080625
  Receipt Date: 20080613
  Transmission Date: 20081010
  Serious: Yes (Other)
  Sender: FDA-Public Use
  Company Number: BR-JNJFOC-20080603755

PATIENT
  Age: 32 Year
  Sex: Male
  Weight: 98 kg

DRUGS (3)
  1. HALDOL [Suspect]
     Indication: DEPRESSION
     Route: 065
  2. NEOZINE [Concomitant]
     Indication: DEPRESSION
     Route: 065
  3. PROMETHAZINE [Concomitant]
     Indication: DEPRESSION
     Route: 065

REACTIONS (5)
  - DISTURBANCE IN SOCIAL BEHAVIOUR [None]
  - DIZZINESS [None]
  - HYPOKINESIA [None]
  - SOMNOLENCE [None]
  - WEIGHT INCREASED [None]
